FAERS Safety Report 5764686-1 (Version None)
Quarter: 2008Q2

REPORT INFORMATION
  Report Type: 
  Country: None (occurrence: None)
  Receive Date: 20080611
  Receipt Date: 20080529
  Transmission Date: 20081010
  Serious: Yes (Other)
  Sender: FDA-Public Use
  Company Number: PHBS2007JP19583

PATIENT
  Age: 13 Year
  Sex: Male

DRUGS (3)
  1. NEORAL [Suspect]
     Indication: NEPHROTIC SYNDROME
     Dosage: UNK, UNK
     Route: 048
     Dates: start: 20070501
  2. URINORM [Suspect]
     Indication: HYPERURICAEMIA
     Dosage: 25 MG/DAY
     Route: 048
     Dates: start: 20070807, end: 20070809
  3. STEROIDS NOS [Concomitant]
     Dosage: TAPERING

REACTIONS (10)
  - ABDOMINAL PAIN [None]
  - ANURIA [None]
  - BACK PAIN [None]
  - BLOOD CREATININE INCREASED [None]
  - BLOOD UREA INCREASED [None]
  - BLOOD URIC ACID INCREASED [None]
  - COMPUTERISED TOMOGRAM ABNORMAL [None]
  - HYPERURICAEMIA [None]
  - RENAL FAILURE ACUTE [None]
  - URATE NEPHROPATHY [None]
